FAERS Safety Report 9582552 (Version 1)
Quarter: 2013Q4

REPORT INFORMATION
  Report Type: Spontaneous
  Country: US (occurrence: US)
  Receive Date: 20131002
  Receipt Date: 20131002
  Transmission Date: 20140711
  Serious: Yes (Hospitalization)
  Sender: FDA-Public Use
  Company Number: US-AMGEN-USASP2013041299

PATIENT
  Age: 48 Year
  Sex: Male

DRUGS (2)
  1. ENBREL [Suspect]
     Indication: PSORIASIS
     Dosage: UNK UNK, QWK
     Dates: start: 20060524, end: 201001
  2. HUMIRA [Suspect]
     Dosage: UNK
     Dates: start: 201004, end: 201102

REACTIONS (5)
  - Pneumonia [Recovered/Resolved]
  - Sepsis [Recovered/Resolved]
  - Mycobacterium avium complex infection [Recovered/Resolved]
  - Drug effect decreased [Not Recovered/Not Resolved]
  - Psoriasis [Not Recovered/Not Resolved]
